FAERS Safety Report 24674043 (Version 1)
Quarter: 2024Q4

REPORT INFORMATION
  Report Type: Spontaneous
  Country: CN (occurrence: CN)
  Receive Date: 20241128
  Receipt Date: 20241128
  Transmission Date: 20250115
  Serious: Yes (Hospitalization)
  Sender: AMGEN
  Company Number: CN-AMGEN-CHNSP2024234042

PATIENT
  Age: 9 Month
  Sex: Male

DRUGS (3)
  1. BLINCYTO [Suspect]
     Active Substance: BLINATUMOMAB
     Indication: Acute lymphocytic leukaemia
     Dosage: 2 MICROGRAM, DRIP
     Route: 040
     Dates: start: 20241109, end: 20241110
  2. BLINCYTO [Suspect]
     Active Substance: BLINATUMOMAB
     Dosage: 4 MICROGRAM, DRIP
     Route: 040
     Dates: start: 20241111, end: 20241111
  3. SODIUM CHLORIDE [Concomitant]
     Active Substance: SODIUM CHLORIDE
     Dosage: 62.5 MILLILITER, DRIP
     Route: 040
     Dates: start: 20241109, end: 20241111

REACTIONS (1)
  - Dysphoria [Recovering/Resolving]

NARRATIVE: CASE EVENT DATE: 20241111
